FAERS Safety Report 18187889 (Version 1)
Quarter: 2020Q3

REPORT INFORMATION
  Report Type: Spontaneous
  Country: US (occurrence: US)
  Receive Date: 20200824
  Receipt Date: 20200824
  Transmission Date: 20201103
  Serious: No
  Sender: FDA-Public Use
  Company Number: US-CADILA HEALTHCARE LIMITED-US-ZYDUS-043066

PATIENT
  Sex: Female

DRUGS (26)
  1. BOSENTAN 125 MG TABLETS [Suspect]
     Active Substance: BOSENTAN
     Indication: PULMONARY ARTERIAL HYPERTENSION
     Dosage: 125 MILLIGRAM,FREQUENCY :TWICE DAILY
     Route: 048
     Dates: start: 20191010
  2. CALCIUM CARBONATE W/VITAMIN D [Concomitant]
     Active Substance: CALCIUM CARBONATE\VITAMIN D
     Indication: PRODUCT USED FOR UNKNOWN INDICATION
     Dosage: 600 MILLIGRAM,FREQUENCY :ONCE DAILY
     Route: 048
  3. BACLOFEN. [Concomitant]
     Active Substance: BACLOFEN
     Indication: PRODUCT USED FOR UNKNOWN INDICATION
     Dosage: 10 MILLIGRAM,FREQUENCY :ONCE DAILY
     Route: 048
     Dates: start: 20190122
  4. CHOLESTYRAMINE LIGHT [Concomitant]
     Active Substance: CHOLESTYRAMINE
     Indication: PRODUCT USED FOR UNKNOWN INDICATION
     Dosage: 4 GRAM,FREQUENCY :ONCE DAILY
     Route: 048
  5. HYDROCODONE W/ACETAMINOPHEN [Concomitant]
     Active Substance: ACETAMINOPHEN\HYDROCODONE BITARTRATE
     Indication: PAIN
     Dosage: 10?325 MG,FREQUENCY :EVERY 6 HOURS AS NEEDED
     Route: 048
  6. OSTEO BI?FLEX [Concomitant]
     Active Substance: CHONDROITIN SULFATE A\GLUCOSAMINE
     Indication: PRODUCT USED FOR UNKNOWN INDICATION
     Dosage: FREQUENCY :TWICE DAILY
     Route: 048
  7. TRAMADOL. [Concomitant]
     Active Substance: TRAMADOL
     Indication: PAIN
     Dosage: 50 MILLIGRAM,FREQUENCY :THREE TIMES DAILY AS NEEDED
     Route: 048
  8. GABAPENTIN. [Concomitant]
     Active Substance: GABAPENTIN
     Indication: PRODUCT USED FOR UNKNOWN INDICATION
     Dosage: 800 MILLIGRAM,FREQUENCY :THREE TIMES DAILY
     Route: 048
     Dates: start: 20190122
  9. WARFARIN [Concomitant]
     Active Substance: WARFARIN
     Indication: PRODUCT USED FOR UNKNOWN INDICATION
     Dosage: 3 MG/ONCE DAILY EXCEPT TAKE 2 MG ON TUESDAY/THURSDAY/SUNDAY
     Route: 065
     Dates: start: 20190108
  10. FUROSEMIDE. [Concomitant]
     Active Substance: FUROSEMIDE
     Indication: PRODUCT USED FOR UNKNOWN INDICATION
     Dosage: 60 MG IN AM AND 20 MG IN AFTERNOON BY MOUTH
     Route: 048
     Dates: start: 20150115
  11. IPRATROPIUM BROMIDE W/SALBUTAMOL [Concomitant]
     Active Substance: ALBUTEROL\IPRATROPIUM BROMIDE
     Indication: PRODUCT USED FOR UNKNOWN INDICATION
     Dosage: 0.5?2.5 MG/3 ML,FREQUENCY :3 ML/TWO TIMES DAILY BY NEBULIZATION
     Route: 055
     Dates: start: 20190417
  12. ONDANSETRON [Concomitant]
     Active Substance: ONDANSETRON
     Indication: NAUSEA
     Dosage: 8 MILLIGRAM,FREQUENCY :EVERY 8 HOURS AS NEEDED
     Route: 048
     Dates: start: 20190426
  13. PRAVASTATIN. [Concomitant]
     Active Substance: PRAVASTATIN
     Indication: PRODUCT USED FOR UNKNOWN INDICATION
     Dosage: 40 MILLIGRAM,FREQUENCY :ONCE NIGHTLY
     Route: 048
  14. VILAZODONE [Concomitant]
     Active Substance: VILAZODONE
     Indication: PRODUCT USED FOR UNKNOWN INDICATION
     Dosage: 20 MILLIGRAM,FREQUENCY :ONCE DAILY
     Route: 048
  15. ALLOPURINOL. [Concomitant]
     Active Substance: ALLOPURINOL
     Indication: PRODUCT USED FOR UNKNOWN INDICATION
     Dosage: 100 MILLIGRAM,FREQUENCY :ONCE DAILY
     Route: 065
     Dates: start: 20140627
  16. BUSPIRONE [Concomitant]
     Active Substance: BUSPIRONE HYDROCHLORIDE
     Indication: PRODUCT USED FOR UNKNOWN INDICATION
     Dosage: 15 MILLIGRAM,FREQUENCY :FOUR TIMES DAILY
     Route: 048
     Dates: start: 20190221
  17. SPIRONOLACTONE. [Concomitant]
     Active Substance: SPIRONOLACTONE
     Indication: PRODUCT USED FOR UNKNOWN INDICATION
     Dosage: 50 MILLIGRAM,FREQUENCY :TWICE DAILY
     Route: 065
     Dates: start: 20190122
  18. POTASSIUM CHLORIDE. [Concomitant]
     Active Substance: POTASSIUM CHLORIDE
     Indication: PRODUCT USED FOR UNKNOWN INDICATION
     Dosage: 10 MILLIEQUIVALENT,FREQUENCY :ONCE DAILY
     Route: 048
     Dates: start: 20190122
  19. AMLODIPINE [Concomitant]
     Active Substance: AMLODIPINE BESYLATE
     Indication: PRODUCT USED FOR UNKNOWN INDICATION
     Dosage: 5 MILLIGRAM,FREQUENCY :TWICE DAILY
     Route: 065
     Dates: start: 20140826
  20. EPOPROSTENOL. [Concomitant]
     Active Substance: EPOPROSTENOL
     Indication: PRODUCT USED FOR UNKNOWN INDICATION
     Dosage: FREQUENCY :INJECT INTO THE VEIN CONTINUOUS
     Route: 042
  21. LEVOTHYROXINE. [Concomitant]
     Active Substance: LEVOTHYROXINE
     Indication: PRODUCT USED FOR UNKNOWN INDICATION
     Dosage: 50 MICROGRAM,FREQUENCY :ONCE DAILY
     Route: 048
  22. POTASSIUM CHLORIDE. [Concomitant]
     Active Substance: POTASSIUM CHLORIDE
     Indication: PRODUCT USED FOR UNKNOWN INDICATION
     Dosage: 20 MILLIEQUIVALENT,FREQUENCY :TWICE DAILY
     Route: 048
     Dates: start: 20190122
  23. ALPRAZOLAM. [Concomitant]
     Active Substance: ALPRAZOLAM
     Indication: PRODUCT USED FOR UNKNOWN INDICATION
     Dosage: .75 MILLIGRAM,FREQUENCY :ONCE NIGHTLY BY MOUTH
     Route: 048
     Dates: start: 20131126
  24. ALPRAZOLAM. [Concomitant]
     Active Substance: ALPRAZOLAM
     Indication: PRODUCT USED FOR UNKNOWN INDICATION
     Dosage: 2 MILLIGRAM,FREQUENCY :TWICE DAILY
     Route: 048
     Dates: start: 20190715
  25. CHOLECALCIFEROL [Concomitant]
     Active Substance: CHOLECALCIFEROL
     Indication: PRODUCT USED FOR UNKNOWN INDICATION
     Dosage: 1000 UNITS ONCE DAILY BY MOUTH AND 2000 UNITS ON TUESDAY/THURSDAY
     Route: 048
  26. METOLAZONE. [Concomitant]
     Active Substance: METOLAZONE
     Indication: PRODUCT USED FOR UNKNOWN INDICATION
     Dosage: 2.5 MILLIGRAM,FREQUENCY :ONCE DAILY
     Route: 048

REACTIONS (9)
  - Flushing [Unknown]
  - Nausea [Unknown]
  - Nasal congestion [Unknown]
  - Pain in extremity [Unknown]
  - Pain in jaw [Unknown]
  - Neck pain [Unknown]
  - Headache [Unknown]
  - Diarrhoea [Unknown]
  - Palpitations [Unknown]

NARRATIVE: CASE EVENT DATE: 2019
